FAERS Safety Report 23685433 (Version 1)
Quarter: 2024Q1

REPORT INFORMATION
  Report Type: Spontaneous
  Country: US (occurrence: US)
  Receive Date: 20240329
  Receipt Date: 20240329
  Transmission Date: 20240409
  Serious: Yes (Other)
  Sender: FDA-Public Use
  Company Number: US-JNJFOC-20240364351

PATIENT
  Age: 71 Year
  Sex: Female
  Weight: 59 kg

DRUGS (1)
  1. CARVYKTI [Suspect]
     Active Substance: CILTACABTAGENE AUTOLEUCEL
     Indication: Plasma cell myeloma
     Route: 065
     Dates: start: 20230123

REACTIONS (2)
  - Enteropathy-associated T-cell lymphoma [Unknown]
  - Immune-mediated enterocolitis [Unknown]

NARRATIVE: CASE EVENT DATE: 20231026
